FAERS Safety Report 8113111-4 (Version None)
Quarter: 2012Q1

REPORT INFORMATION
  Report Type: 
  Country: None (occurrence: None)
  Receive Date: 20120203
  Receipt Date: 20120130
  Transmission Date: 20120608
  Serious: Yes (Hospitalization)
  Sender: FDA-Public Use
  Company Number: FR-UCBSA-027157

PATIENT
  Age: 35 Year
  Sex: Female
  Weight: 55 kg

DRUGS (9)
  1. VIMPAT [Suspect]
     Indication: EPILEPSY
     Route: 048
  2. VIMPAT [Suspect]
     Route: 048
     Dates: start: 20101026, end: 20110205
  3. LAMICTAL [Concomitant]
     Route: 048
     Dates: start: 20070117, end: 20110206
  4. DEPAKENE [Concomitant]
  5. VIMPAT [Suspect]
     Dosage: 200 MG IN THE MORNING AND 150 MG IN THE EVENING.
     Route: 048
  6. LAMICTAL [Concomitant]
     Indication: EPILEPSY
     Route: 048
  7. VIMPAT [Suspect]
     Route: 048
     Dates: start: 20110206
  8. LAMICTAL [Concomitant]
     Route: 048
     Dates: start: 20110207
  9. LAMICTAL [Concomitant]
     Dosage: DOSE INCREASED
     Route: 048

REACTIONS (1)
  - STATUS EPILEPTICUS [None]
